FAERS Safety Report 9217301 (Version 1)
Quarter: 2013Q1

REPORT INFORMATION
  Report Type: Spontaneous
  Country: US (occurrence: None)
  Receive Date: 20120827
  Receipt Date: 20120827
  Transmission Date: 20140127
  Serious: No
  Sender: FDA-Public Use
  Company Number: 353794

PATIENT
  Age: 63 Year
  Sex: Male

DRUGS (1)
  1. VICTOZA [Suspect]
     Indication: TYPE 2 DIABETES MELLITUS
     Route: 058
     Dates: start: 20120609, end: 20120611

REACTIONS (9)
  - Hiccups [None]
  - Respiratory disorder [None]
  - Oropharyngeal pain [None]
  - Retching [None]
  - Decreased appetite [None]
  - Eructation [None]
  - Abdominal discomfort [None]
  - Nausea [None]
  - Dysphonia [None]
